FAERS Safety Report 4764813-9 (Version None)
Quarter: 2005Q3

REPORT INFORMATION
  Report Type: 
  Country: None (occurrence: None)
  Receive Date: 20050907
  Receipt Date: 20050829
  Transmission Date: 20060218
  Serious: Yes (Hospitalization, Other)
  Sender: FDA-Public Use
  Company Number: 2005111782

PATIENT
  Age: 67 Year
  Sex: Male
  Weight: 76.6579 kg

DRUGS (9)
  1. TIKOSYN [Suspect]
     Indication: ATRIAL FIBRILLATION
     Dosage: 1 MG (0.5 MG, 2 IN 1 D), ORAL
     Route: 048
     Dates: start: 20010801, end: 20050804
  2. ASACOL [Concomitant]
  3. COSOPT [Concomitant]
  4. PILOCARPINE (PILOCARPINE0 [Concomitant]
  5. MULTIPLE VITAMINS (ASCORBIC ACID, ERGOCALCIFEROL, FOLIC ACID, RETINOL, [Concomitant]
  6. MINERALS NOS (MINERALS NOS) [Concomitant]
  7. OS-CAL (CALCIUM, ERGOCALCIFEROL) [Concomitant]
  8. ACETYLSALICYLIC ACID 9ACETYLSALICYLIC ACID0 [Concomitant]
  9. FOLIC ACID [Concomitant]

REACTIONS (12)
  - ARTHRITIS [None]
  - ATRIAL FIBRILLATION [None]
  - CHRONIC LYMPHOCYTIC LEUKAEMIA [None]
  - DISEASE RECURRENCE [None]
  - DIZZINESS [None]
  - DRUG INEFFECTIVE [None]
  - HYPOTHYROIDISM [None]
  - NAUSEA [None]
  - PHARMACEUTICAL PRODUCT COMPLAINT [None]
  - PLANTAR FASCIITIS [None]
  - QRS AXIS ABNORMAL [None]
  - THERAPY NON-RESPONDER [None]
